FAERS Safety Report 5831377-8 (Version None)
Quarter: 2008Q3

REPORT INFORMATION
  Report Type: 
  Country: None (occurrence: None)
  Receive Date: 20080801
  Receipt Date: 20080725
  Transmission Date: 20090109
  Serious: Yes (Other)
  Sender: FDA-Public Use
  Company Number: GB-BOEHRINGER INGELHEIM GMBH, GERMANY-2008-UK-01122UK

PATIENT
  Sex: Male

DRUGS (11)
  1. PRAMIPEXOLE DIHYDROCHLORIDE [Suspect]
     Indication: PARKINSON'S DISEASE
     Dosage: 1MG TDS, 250MCGX4 BD, 250MCGX2 OD (NOCTE)
     Route: 048
     Dates: start: 20030101
  2. PRAMIPEXOLE DIHYDROCHLORIDE [Suspect]
     Dosage: DOSE INCREASED ABOVE RECOMMMENDED THERAPEUTIC DOSE
     Route: 048
     Dates: start: 20071001
  3. PRAMIPEXOLE DIHYDROCHLORIDE [Suspect]
     Dosage: TITRATED DOWN TO RECOMMENDED THERAPEUTIC DOSE NOS
     Route: 048
  4. SELEGILINE HCL [Concomitant]
     Indication: PARKINSON'S DISEASE
     Dosage: 10MG TWICE DAILY
     Route: 048
     Dates: start: 19980101
  5. PROCYCLIDINE HYDROCHLORIDE 2MG TAB [Concomitant]
     Indication: PARKINSON'S DISEASE
     Dosage: 5MG TDS
     Route: 048
  6. STALEVO 100 [Concomitant]
     Indication: PARKINSON'S DISEASE
     Route: 048
     Dates: start: 20080101
  7. STALEVO 100 [Concomitant]
     Route: 048
     Dates: start: 20080101
  8. STALEVO 100 [Concomitant]
     Route: 048
     Dates: start: 20080101
  9. AMANTADINE HCL [Concomitant]
     Indication: PARKINSON'S DISEASE
     Dosage: 100MG TDS
     Route: 048
     Dates: start: 20060101
  10. LORAZEPAM [Concomitant]
     Indication: PARKINSON'S DISEASE
     Dosage: 1MG QDS
     Route: 048
  11. BENZHEXOL [Concomitant]
     Indication: PARKINSON'S DISEASE
     Dosage: 2MG TDS
     Route: 048

REACTIONS (2)
  - HYPERSEXUALITY [None]
  - MEDICATION ERROR [None]
